APPROVED DRUG PRODUCT: LIDOCAINE AND PRILOCAINE
Active Ingredient: LIDOCAINE; PRILOCAINE
Strength: 2.5%;2.5%
Dosage Form/Route: CREAM;TOPICAL
Application: A212482 | Product #001 | TE Code: AB
Applicant: PADAGIS US LLC
Approved: Jul 27, 2021 | RLD: No | RS: No | Type: RX